FAERS Safety Report 21356497 (Version 2)
Quarter: 2022Q3

REPORT INFORMATION
  Report Type: Spontaneous
  Country: SE (occurrence: SE)
  Receive Date: 20220920
  Receipt Date: 20220926
  Transmission Date: 20221026
  Serious: Yes (Other)
  Sender: FDA-Public Use
  Company Number: None

PATIENT
  Age: 57 Year
  Sex: Female
  Weight: 82 kg

DRUGS (5)
  1. TRODELVY [Suspect]
     Active Substance: SACITUZUMAB GOVITECAN-HZIY
     Indication: Triple negative breast cancer
     Dosage: 820 MG (10 MG/KG)
     Route: 042
     Dates: start: 20220905, end: 20220905
  2. AKYNZEO (NETUPITANT\PALONOSETRON) [Concomitant]
     Active Substance: NETUPITANT\PALONOSETRON
     Dosage: 1, ONCE
     Dates: start: 20220905, end: 20220905
  3. BETAMETHASONE [Concomitant]
     Active Substance: BETAMETHASONE
     Route: 048
     Dates: start: 20220905, end: 20220905
  4. DESLORATADINE [Concomitant]
     Active Substance: DESLORATADINE
     Route: 048
     Dates: start: 20220905, end: 20220905
  5. ACETAMINOPHEN [Concomitant]
     Active Substance: ACETAMINOPHEN
     Dates: start: 20220905, end: 20220905

REACTIONS (3)
  - Amnesia [Recovered/Resolved]
  - Hypoaesthesia oral [Recovered/Resolved]
  - Infusion related reaction [Recovered/Resolved]

NARRATIVE: CASE EVENT DATE: 20220905
